FAERS Safety Report 6077821-5 (Version None)
Quarter: 2009Q1

REPORT INFORMATION
  Report Type: 
  Country: None (occurrence: None)
  Receive Date: 20090213
  Receipt Date: 20090203
  Transmission Date: 20090719
  Serious: Yes (Hospitalization)
  Sender: FDA-Public Use
  Company Number: US-ABBOTT-09P-163-0501194-00

PATIENT
  Sex: Male
  Weight: 76.272 kg

DRUGS (10)
  1. HUMIRA [Suspect]
     Indication: RHEUMATOID ARTHRITIS
     Route: 058
     Dates: start: 20060301, end: 20080101
  2. HUMIRA [Suspect]
     Route: 058
     Dates: start: 20080101
  3. LANTUS [Concomitant]
     Indication: TYPE 2 DIABETES MELLITUS
  4. METFORMIN HCL [Concomitant]
     Indication: TYPE 2 DIABETES MELLITUS
  5. ALLOPURINOL [Concomitant]
     Indication: GOUT
  6. FOLBIC [Concomitant]
     Indication: ANAEMIA
  7. QUINAPRIL [Concomitant]
     Indication: HYPERTENSION
  8. LEVOTHYROXINE SODIUM [Concomitant]
     Indication: THYROID FUNCTION TEST ABNORMAL
  9. ACTOS [Concomitant]
     Indication: TYPE 2 DIABETES MELLITUS
  10. LOVAZA [Concomitant]
     Indication: BLOOD CHOLESTEROL INCREASED

REACTIONS (3)
  - ARTHROPATHY [None]
  - JOINT SWELLING [None]
  - RHEUMATOID ARTHRITIS [None]
